FAERS Safety Report 9074255 (Version 1)
Quarter: 2013Q1

REPORT INFORMATION
  Report Type: Spontaneous
  Country: US (occurrence: US)
  Receive Date: 20130128
  Receipt Date: 20130128
  Transmission Date: 20140127
  Serious: No
  Sender: FDA-Public Use
  Company Number: US-ABBOTT-12P-163-0889457-00

PATIENT
  Sex: Female
  Weight: 52.66 kg

DRUGS (17)
  1. HUMIRA 40 MG/0.8 ML PEN [Suspect]
     Indication: PSORIATIC ARTHROPATHY
  2. PRAVASTATIN [Concomitant]
     Indication: BLOOD CHOLESTEROL INCREASED
  3. CYMBALTA [Concomitant]
     Indication: DEPRESSION
  4. LISINOPRIL [Concomitant]
     Indication: HYPERTENSION
     Dosage: AT BEDTIME
  5. METFORMIN [Concomitant]
     Indication: DIABETES MELLITUS
  6. VITAMIN D [Concomitant]
     Indication: PRODUCT USED FOR UNKNOWN INDICATION
     Dosage: 1.25MG - 50,000 UNITS, PER PT,1 IN 2 WK
  7. CELEBREX [Concomitant]
     Indication: ARTHRITIS
  8. METHOTREXATE [Concomitant]
     Indication: PSORIATIC ARTHROPATHY
     Dosage: 3 TABLETS ONCE A WEEK
  9. FOLIC ACID [Concomitant]
     Indication: VITAMIN SUPPLEMENTATION
  10. PREDNISONE [Concomitant]
     Indication: PRODUCT USED FOR UNKNOWN INDICATION
     Dosage: ONE IN AM + ONE IN PM
  11. GLIMEPIRIDE [Concomitant]
     Indication: DIABETES MELLITUS
  12. BYETTA [Concomitant]
     Indication: DIABETES MELLITUS
     Dosage: INSULIN
  13. LORAZEPAM [Concomitant]
     Indication: ANXIETY
  14. MECLIZINE [Concomitant]
     Indication: VERTIGO
  15. BONIVA [Concomitant]
     Indication: OSTEOPOROSIS
  16. ICONEPRAZOLE [Concomitant]
     Indication: PROPHYLAXIS
  17. ICONEPRAZOLE [Concomitant]
     Indication: ULCER

REACTIONS (3)
  - Localised infection [Not Recovered/Not Resolved]
  - Local swelling [Not Recovered/Not Resolved]
  - Purulent discharge [Unknown]
